FAERS Safety Report 9299371 (Version 3)
Quarter: 2013Q4

REPORT INFORMATION
  Report Type: Spontaneous
  Country: US (occurrence: US)
  Receive Date: 20130520
  Receipt Date: 20131223
  Transmission Date: 20140711
  Serious: Yes (Hospitalization)
  Sender: FDA-Public Use
  Company Number: US-B.I. PHARMACEUTICALS,INC./RIDGEFIELD-2013-BI-13765BP

PATIENT
  Age: 76 Year
  Sex: Male
  Weight: 90.72 kg

DRUGS (20)
  1. PRADAXA [Suspect]
     Indication: ANTICOAGULANT THERAPY
     Dosage: 300 MG
     Route: 048
     Dates: start: 20110126, end: 20120311
  2. ASPIRIN [Suspect]
     Dosage: 81 MG
     Route: 048
     Dates: end: 20120311
  3. DELTASONE [Suspect]
     Dosage: 30 MG
     Route: 048
  4. OMEPRAZOLE [Concomitant]
     Dosage: 20 MG
     Route: 048
  5. IRON SULFATE [Concomitant]
     Dosage: 325 MG
     Route: 048
  6. SYNTHROID [Concomitant]
     Dosage: 75 MCG
     Route: 048
  7. DURAGESIC PATCH [Concomitant]
     Route: 062
  8. VYTORIN [Concomitant]
     Route: 048
  9. LANOXIN [Concomitant]
     Indication: TACHYCARDIA
     Dosage: 0.125 MG
     Route: 048
  10. COREG [Concomitant]
     Dosage: 25 MG
     Route: 048
  11. ROCALTROL [Concomitant]
     Dosage: 0.25 MCG
     Route: 048
  12. BUMEX [Concomitant]
     Dosage: 6 MG
     Route: 048
  13. PRINIVIL [Concomitant]
     Dosage: 2.5 MG
  14. ATIVAN [Concomitant]
     Route: 048
  15. THERAGRAN M [Concomitant]
     Route: 048
  16. NITROSTAT [Concomitant]
     Route: 060
  17. MICRO-K [Concomitant]
     Dosage: 40 MEQ
     Route: 048
  18. FLOMAX [Concomitant]
     Dosage: 0.4 MG
     Route: 048
  19. ULTRACET [Concomitant]
     Route: 048
  20. AMBIEN [Concomitant]
     Route: 048

REACTIONS (8)
  - Lower gastrointestinal haemorrhage [Recovered/Resolved]
  - Upper gastrointestinal haemorrhage [Recovered/Resolved]
  - Gastric ulcer haemorrhage [Recovered/Resolved]
  - Coagulopathy [Unknown]
  - Haemorrhagic anaemia [Unknown]
  - Leukocytosis [Unknown]
  - Renal failure acute [Unknown]
  - Shock haemorrhagic [Unknown]
